FAERS Safety Report 24215283 (Version 1)
Quarter: 2024Q3

REPORT INFORMATION
  Report Type: Spontaneous
  Country: SE (occurrence: SE)
  Receive Date: 20240816
  Receipt Date: 20240816
  Transmission Date: 20241016
  Serious: Yes (Hospitalization, Other)
  Sender: SANDOZ
  Company Number: None

PATIENT
  Age: 67 Year
  Sex: Female

DRUGS (17)
  1. TRIMEPRAZINE TARTRATE [Suspect]
     Active Substance: TRIMEPRAZINE TARTRATE
     Indication: Product used for unknown indication
     Dosage: 20.000MG QD/CAPSULE, HARD
     Route: 065
     Dates: start: 20240102
  2. ACETAMINOPHEN [Suspect]
     Active Substance: ACETAMINOPHEN
     Indication: Product used for unknown indication
     Dosage: 1-2 TABLETTER VB TV MAX 8/D
     Route: 065
     Dates: start: 20190206
  3. ATENOLOL [Suspect]
     Active Substance: ATENOLOL
     Indication: Product used for unknown indication
     Dosage: 50.000MG QD
     Route: 065
     Dates: start: 20180210
  4. ATORVASTATIN [Suspect]
     Active Substance: ATORVASTATIN
     Indication: Product used for unknown indication
     Dosage: 20.000MG QD
     Route: 065
     Dates: start: 20200605
  5. FELODIPINE [Suspect]
     Active Substance: FELODIPINE
     Indication: Product used for unknown indication
     Dosage: 5.000MG QD
     Route: 065
     Dates: start: 20210330
  6. JARDIANCE [Suspect]
     Active Substance: EMPAGLIFLOZIN
     Indication: Product used for unknown indication
     Dosage: 10.000MG QD
     Route: 065
     Dates: start: 20170517
  7. LEVOTHYROXINE SODIUM [Suspect]
     Active Substance: LEVOTHYROXINE SODIUM
     Indication: Product used for unknown indication
     Dosage: 25.000UG QD
     Route: 065
     Dates: start: 20170713
  8. LOSARTAN [Suspect]
     Active Substance: LOSARTAN\LOSARTAN POTASSIUM
     Indication: Product used for unknown indication
     Dosage: 50.000MG QD
     Route: 065
     Dates: start: 20200402
  9. METFORMIN HYDROCHLORIDE [Suspect]
     Active Substance: METFORMIN HYDROCHLORIDE
     Indication: Product used for unknown indication
     Dosage: 1000.000MG BID
     Route: 065
     Dates: start: 20170714
  10. OMEPRAZOLE [Suspect]
     Active Substance: OMEPRAZOLE
     Indication: Product used for unknown indication
     Dosage: 20.000MG QD
     Route: 065
     Dates: start: 20170410
  11. MOMETASONE FUROATE [Suspect]
     Active Substance: MOMETASONE FUROATE
     Indication: Product used for unknown indication
     Dosage: UNK
     Route: 065
     Dates: start: 20170410
  12. OZEMPIC [Suspect]
     Active Substance: SEMAGLUTIDE
     Indication: Product used for unknown indication
     Dosage: 1.000MG
     Route: 065
     Dates: start: 20231114
  13. PREGABALIN [Suspect]
     Active Substance: PREGABALIN
     Indication: Product used for unknown indication
     Dosage: 300.000MG BID
     Route: 065
     Dates: start: 20181115
  14. SERTRALINE HYDROCHLORIDE [Suspect]
     Active Substance: SERTRALINE HYDROCHLORIDE
     Indication: Product used for unknown indication
     Dosage: 1.500MG QD
     Route: 065
     Dates: start: 20230515
  15. CARBOMER [Suspect]
     Active Substance: CARBOMER
     Indication: Product used for unknown indication
     Dosage: EYE GEL IN SINGLE-DOSE CONTAINER
     Route: 065
     Dates: start: 20181108
  16. BUPROPION HYDROCHLORIDE [Suspect]
     Active Substance: BUPROPION HYDROCHLORIDE
     Indication: Product used for unknown indication
     Dosage: 150.000MG QD
     Route: 065
  17. ZOPICLONE [Suspect]
     Active Substance: ZOPICLONE
     Indication: Product used for unknown indication
     Dosage: 0,5 TABLETT X 0-1
     Route: 065
     Dates: start: 20240418

REACTIONS (4)
  - Fall [Unknown]
  - Back pain [Unknown]
  - Dizziness [Unknown]
  - Hyponatraemia [Unknown]

NARRATIVE: CASE EVENT DATE: 20240501
